FAERS Safety Report 4619929-4 (Version None)
Quarter: 2005Q1

REPORT INFORMATION
  Report Type: 
  Country: None (occurrence: None)
  Receive Date: 20050328
  Receipt Date: 20050120
  Transmission Date: 20050727
  Serious: Yes (Hospitalization, Other)
  Sender: FDA-Public Use
  Company Number: GB-ABBOTT-05P-167-0288051-01

PATIENT
  Sex: Female
  Weight: 96.6 kg

DRUGS (16)
  1. SIBUTRAMINE (BLINDED) [Suspect]
     Indication: OBESITY
     Route: 048
     Dates: start: 20030930
  2. METFORMIN HCL [Concomitant]
     Indication: DIABETES MELLITUS NON-INSULIN-DEPENDENT
     Dates: start: 19990804
  3. INSULIN [Concomitant]
     Indication: DIABETES MELLITUS NON-INSULIN-DEPENDENT
     Dosage: 58 UNITS AM/26 UNITS PM
     Dates: start: 20030902
  4. AMLODIPINE [Concomitant]
     Indication: HYPERTENSION
     Dates: start: 19980801
  5. DIHYDROCODEINE [Concomitant]
     Indication: ANALGESIC EFFECT
     Dates: start: 20040301
  6. KETOPROFEN [Concomitant]
     Indication: ARTHRITIS
     Dates: start: 19980301
  7. FRUMIL [Concomitant]
     Indication: HYPERTENSION
     Dates: start: 20021101
  8. VALSARTAN [Concomitant]
     Indication: MYOCARDIAL ISCHAEMIA
     Dates: start: 20041110
  9. DOXAZOSIN [Concomitant]
     Indication: HYPERTENSION
     Dates: start: 19980801
  10. NITROGLYCERIN [Concomitant]
     Indication: ANGINA PECTORIS
  11. ACETYLSALICYLIC ACID SRT [Concomitant]
     Indication: MYOCARDIAL ISCHAEMIA
  12. QUININE SULFATE [Concomitant]
     Indication: MUSCLE SPASMS
  13. PANTOPRAZOLE [Concomitant]
     Indication: GASTRITIS
     Dates: start: 20040101
  14. ISHN [Concomitant]
     Indication: HYPERTENSION
     Dates: start: 19980801
  15. NICORANDIL [Concomitant]
     Indication: ANGINA PECTORIS
     Dates: start: 20041110, end: 20050125
  16. NICORANDIL [Concomitant]
     Dates: start: 20050125

REACTIONS (6)
  - CARDIAC FAILURE CONGESTIVE [None]
  - GASTRITIS [None]
  - HIATUS HERNIA [None]
  - IRON DEFICIENCY ANAEMIA [None]
  - PULMONARY FIBROSIS [None]
  - RESTRICTIVE PULMONARY DISEASE [None]
